FAERS Safety Report 8283133-1 (Version None)
Quarter: 2012Q2

REPORT INFORMATION
  Report Type: 
  Country: None (occurrence: None)
  Receive Date: 20120413
  Receipt Date: 20120405
  Transmission Date: 20120825
  Serious: Yes (Other)
  Sender: FDA-Public Use
  Company Number: US-GLAXOSMITHKLINE-A0972440A

PATIENT
  Age: 11 Year
  Sex: Male

DRUGS (3)
  1. CLARITIN [Concomitant]
  2. ALBUTEROL [Concomitant]
  3. FLOVENT [Suspect]
     Indication: ASTHMA
     Dosage: 1PUFF TWICE PER DAY
     Route: 055
     Dates: start: 20110701

REACTIONS (3)
  - COUGH [None]
  - ASTHMA [None]
  - PRODUCT QUALITY ISSUE [None]
